FAERS Safety Report 11166499 (Version 1)
Quarter: 2015Q2

REPORT INFORMATION
  Report Type: Spontaneous
  Country: US (occurrence: US)
  Receive Date: 20150605
  Receipt Date: 20150605
  Transmission Date: 20150821
  Serious: No
  Sender: FDA-Public Use
  Company Number: US-JNJFOC-20150519724

PATIENT
  Age: 7 Year

DRUGS (2)
  1. RISPERIDONE. [Suspect]
     Active Substance: RISPERIDONE
     Indication: BIPOLAR I DISORDER
     Route: 030
  2. VALPROIC ACID. [Suspect]
     Active Substance: VALPROIC ACID
     Indication: BIPOLAR DISORDER
     Route: 065

REACTIONS (11)
  - Metabolic disorder [Unknown]
  - Anger [Unknown]
  - Enuresis [Unknown]
  - Body mass index increased [Unknown]
  - Depressed mood [Unknown]
  - Liver function test abnormal [Unknown]
  - Headache [Unknown]
  - Initial insomnia [Unknown]
  - Weight increased [Unknown]
  - Blood prolactin increased [Unknown]
  - Irritability [Unknown]
